FAERS Safety Report 13177005 (Version 2)
Quarter: 2017Q3

REPORT INFORMATION
  Report Type: Report from Study
  Country: US (occurrence: US)
  Receive Date: 20170201
  Receipt Date: 20170731
  Transmission Date: 20171127
  Serious: No
  Sender: FDA-Public Use
  Company Number: US-EXELIXIS-CABO-16006851

PATIENT
  Age: 59 Year
  Sex: Male

DRUGS (10)
  1. FISH OIL [Concomitant]
     Active Substance: FISH OIL
  2. VITAMINS NOS [Concomitant]
     Active Substance: VITAMINS
  3. LOMOTIL [Concomitant]
     Active Substance: ATROPINE SULFATE\DIPHENOXYLATE HYDROCHLORIDE
  4. DILANTIN [Concomitant]
     Active Substance: PHENYTOIN
  5. CABOMETYX [Suspect]
     Active Substance: CABOZANTINIB S-MALATE
     Indication: RENAL CANCER
     Dosage: 60 MG, QD
     Route: 048
     Dates: start: 20160720
  6. PRILOSEC [Concomitant]
     Active Substance: OMEPRAZOLE MAGNESIUM
  7. KEPPRA [Concomitant]
     Active Substance: LEVETIRACETAM
  8. METFORMIN [Concomitant]
     Active Substance: METFORMIN HYDROCHLORIDE
  9. BENICAR [Concomitant]
     Active Substance: OLMESARTAN MEDOXOMIL
  10. VIMPAT [Concomitant]
     Active Substance: LACOSAMIDE

REACTIONS (12)
  - Constipation [Recovered/Resolved]
  - Flatulence [Unknown]
  - Abdominal discomfort [Unknown]
  - Gastrointestinal motility disorder [Unknown]
  - Heart rate decreased [Unknown]
  - Retching [Unknown]
  - Nausea [Unknown]
  - Blood pressure increased [Unknown]
  - Decreased appetite [Unknown]
  - Cough [Not Recovered/Not Resolved]
  - Asthenia [Unknown]
  - Blood glucose increased [Unknown]

NARRATIVE: CASE EVENT DATE: 201608
